FAERS Safety Report 14029210 (Version 5)
Quarter: 2020Q1

REPORT INFORMATION
  Report Type: Spontaneous
  Country: US (occurrence: US)
  Receive Date: 20170930
  Receipt Date: 20200311
  Transmission Date: 20200409
  Serious: Yes (Disabling)
  Sender: FDA-Public Use
  Company Number: US-SA-2017SA084771

PATIENT
  Age: 65 Year
  Sex: Female

DRUGS (2)
  1. AUBAGIO [Suspect]
     Active Substance: TERIFLUNOMIDE
     Indication: MULTIPLE SCLEROSIS
     Dosage: 14 MG, QD
     Route: 048
     Dates: start: 20160521
  2. AMPYRA [Concomitant]
     Active Substance: DALFAMPRIDINE
     Dosage: UNK
     Route: 065
     Dates: start: 201808

REACTIONS (8)
  - Condition aggravated [Not Recovered/Not Resolved]
  - Walking aid user [Not Recovered/Not Resolved]
  - Mobility decreased [Not Recovered/Not Resolved]
  - Balance disorder [Not Recovered/Not Resolved]
  - Feeling jittery [Recovered/Resolved]
  - Product dose omission [Unknown]
  - Gait disturbance [Not Recovered/Not Resolved]
  - Anxiety [Recovered/Resolved]

NARRATIVE: CASE EVENT DATE: 2018
